FAERS Safety Report 6851782-0 (Version None)
Quarter: 2010Q3

REPORT INFORMATION
  Report Type: 
  Country: None (occurrence: None)
  Receive Date: 20100717
  Receipt Date: 20071026
  Transmission Date: 20110219
  Serious: No
  Sender: FDA-Public Use
  Company Number: US-PFIZER INC-2007092531

PATIENT
  Sex: Female
  Weight: 61.363 kg

DRUGS (6)
  1. CHANTIX [Suspect]
     Indication: SMOKING CESSATION THERAPY
     Route: 048
     Dates: start: 20071017
  2. SYNTHROID [Concomitant]
  3. NEXIUM [Concomitant]
  4. ACETYLSALICYLIC ACID SRT [Concomitant]
  5. CO-Q-10 [Concomitant]
  6. TYLENOL [Concomitant]

REACTIONS (2)
  - HEADACHE [None]
  - INSOMNIA [None]
